FAERS Safety Report 23966807 (Version 1)
Quarter: 2024Q2

REPORT INFORMATION
  Report Type: Spontaneous
  Country: CA (occurrence: None)
  Receive Date: 20240612
  Receipt Date: 20240612
  Transmission Date: 20240715
  Serious: Yes (Other)
  Sender: FDA-Public Use
  Company Number: CA-PFIZER INC-202400189822

PATIENT
  Age: 65 Year
  Sex: Male

DRUGS (2)
  1. METHOTREXATE [Suspect]
     Active Substance: METHOTREXATE
     Indication: Colitis ulcerative
     Dates: start: 2014
  2. REMICADE [Concomitant]
     Active Substance: INFLIXIMAB
     Dosage: CYCLIC
     Dates: start: 2012

REACTIONS (2)
  - Colon cancer [Not Recovered/Not Resolved]
  - Product use in unapproved indication [Unknown]
